FAERS Safety Report 20345222 (Version 2)
Quarter: 2022Q1

REPORT INFORMATION
  Report Type: Spontaneous
  Country: IE (occurrence: IE)
  Receive Date: 20220118
  Receipt Date: 20220302
  Transmission Date: 20220423
  Serious: Yes (Other)
  Sender: FDA-Public Use
  Company Number: IE-AMGEN-IRLSP2021207085

PATIENT
  Age: 37 Year
  Sex: Male

DRUGS (4)
  1. CINACALCET HYDROCHLORIDE [Suspect]
     Active Substance: CINACALCET HYDROCHLORIDE
     Indication: Hyperparathyroidism secondary
     Dosage: 60 MILLIGRAM, QD
     Route: 065
  2. CINACALCET HYDROCHLORIDE [Suspect]
     Active Substance: CINACALCET HYDROCHLORIDE
     Dosage: 30 MILLIGRAM, QD
     Route: 065
  3. PHOSPHORIC ACID SODIUM [Concomitant]
     Indication: Hyperparathyroidism secondary
     Dosage: 1 GRAM, QD
  4. ALFACALCIDOL [Concomitant]
     Active Substance: ALFACALCIDOL
     Indication: Hyperparathyroidism secondary
     Dosage: 2 MICROGRAM, QD

REACTIONS (7)
  - Blood 1,25-dihydroxycholecalciferol increased [Unknown]
  - Phosphaturic mesenchymal tumour [Unknown]
  - Bone lesion [Unknown]
  - Short stature [Unknown]
  - Drug ineffective [Unknown]
  - Kyphosis [Unknown]
  - Hypocalcaemia [Unknown]
